FAERS Safety Report 8540410-4 (Version None)
Quarter: 2012Q3

REPORT INFORMATION
  Report Type: 
  Country: None (occurrence: None)
  Receive Date: 20120726
  Receipt Date: 20110511
  Transmission Date: 20120928
  Serious: No
  Sender: FDA-Public Use
  Company Number: US-ASTRAZENECA-2011SE28070

PATIENT
  Sex: Female

DRUGS (1)
  1. SEROQUEL XR [Suspect]
     Route: 048

REACTIONS (9)
  - DRY THROAT [None]
  - BALANCE DISORDER [None]
  - SINUS HEADACHE [None]
  - URINARY RETENTION [None]
  - OROPHARYNGEAL PAIN [None]
  - INCORRECT DOSE ADMINISTERED [None]
  - HEADACHE [None]
  - DRY EYE [None]
  - SINUS CONGESTION [None]
